FAERS Safety Report 8390885-9 (Version None)
Quarter: 2012Q2

REPORT INFORMATION
  Report Type: 
  Country: None (occurrence: None)
  Receive Date: 20120529
  Receipt Date: 20120522
  Transmission Date: 20120825
  Serious: Yes (Hospitalization)
  Sender: FDA-Public Use
  Company Number: US-JNJFOC-20120518957

PATIENT
  Age: 31 Year
  Sex: Male

DRUGS (4)
  1. TRAMADOL HCL [Suspect]
     Indication: PRODUCT USED FOR UNKNOWN INDICATION
     Dosage: 150 MG, 3 TIMES A DAY
     Route: 065
  2. ACETAMINOPHEN [Concomitant]
     Indication: PROCEDURAL PAIN
     Dosage: 5 TO 6 TABLETS PER DAY, 4 TIMES DAILY FOR 5 DAYS
     Route: 048
  3. METHAMPHETAMINE HYDROCHLORIDE [Suspect]
     Indication: PRODUCT USED FOR UNKNOWN INDICATION
     Route: 065
  4. VICODIN [Suspect]
     Indication: PAIN
     Route: 065

REACTIONS (4)
  - HALLUCINATION [None]
  - TRANSAMINASES INCREASED [None]
  - DRUG DIVERSION [None]
  - PARANOIA [None]
